FAERS Safety Report 13185469 (Version 2)
Quarter: 2017Q1

REPORT INFORMATION
  Report Type: Report from Study
  Country: JP (occurrence: JP)
  Receive Date: 20170203
  Receipt Date: 20170307
  Transmission Date: 20170428
  Serious: Yes (Other)
  Sender: FDA-Public Use
  Company Number: PHHY2014JP027393

PATIENT
  Age: 56 Year
  Sex: Female

DRUGS (41)
  1. CERTICAN [Suspect]
     Active Substance: EVEROLIMUS
     Dosage: 1.5 MG, UNK
     Route: 048
     Dates: start: 20120810, end: 20120822
  2. CERTICAN [Suspect]
     Active Substance: EVEROLIMUS
     Dosage: 3.5 MG, UNK
     Route: 048
     Dates: start: 20150508, end: 20150903
  3. CERTICAN [Suspect]
     Active Substance: EVEROLIMUS
     Dosage: 3.75 MG, UNK
     Route: 048
     Dates: start: 20150904
  4. BLOPRESS [Concomitant]
     Active Substance: CANDESARTAN CILEXETIL
     Indication: HYPERTENSION
     Dosage: 8 MG, UNK
     Route: 048
  5. DEPAKENE [Concomitant]
     Active Substance: VALPROIC ACID
     Indication: PROPHYLAXIS
     Dosage: 400 MG, UNK
     Route: 048
  6. CERTICAN [Suspect]
     Active Substance: EVEROLIMUS
     Indication: HEART TRANSPLANT
     Dosage: 1 MG, UNK
     Route: 048
     Dates: start: 20120706, end: 20120717
  7. CERTICAN [Suspect]
     Active Substance: EVEROLIMUS
     Dosage: 3.25 MG, UNK
     Route: 048
     Dates: start: 20140808, end: 20140904
  8. NEORAL [Suspect]
     Active Substance: CYCLOSPORINE
     Indication: HEART TRANSPLANT
     Dosage: 165 MG, UNK
     Route: 048
     Dates: start: 20120511, end: 20120711
  9. NEORAL [Suspect]
     Active Substance: CYCLOSPORINE
     Dosage: 105 MG, UNK
     Route: 048
     Dates: start: 20120823, end: 20120906
  10. CERTICAN [Suspect]
     Active Substance: EVEROLIMUS
     Dosage: 3.25 MG, UNK
     Route: 048
     Dates: start: 20150109, end: 20150507
  11. NEORAL [Suspect]
     Active Substance: CYCLOSPORINE
     Dosage: 140 MG, UNK
     Route: 048
     Dates: start: 20120712, end: 20120717
  12. NEORAL [Suspect]
     Active Substance: CYCLOSPORINE
     Dosage: 115 MG, UNK
     Route: 048
     Dates: start: 20120726, end: 20120809
  13. NEORAL [Suspect]
     Active Substance: CYCLOSPORINE
     Dosage: 90 MG, UNK
     Route: 048
     Dates: start: 20120927
  14. NEORAL [Suspect]
     Active Substance: CYCLOSPORINE
     Dosage: 75 MG, UNK
     Route: 048
     Dates: start: 20130614
  15. BAKTAR [Concomitant]
     Active Substance: SULFAMETHOXAZOLE\TRIMETHOPRIM
     Indication: INFECTION PROPHYLAXIS
     Dosage: 1 DF, QW2 (MONDAY AND THURSDAY)
     Route: 048
     Dates: start: 20120725
  16. CERTICAN [Suspect]
     Active Substance: EVEROLIMUS
     Dosage: 1.75 MG, UNK
     Route: 048
     Dates: start: 20120823, end: 20120906
  17. CERTICAN [Suspect]
     Active Substance: EVEROLIMUS
     Dosage: 3 MG, UNK
     Route: 048
     Dates: start: 20130531
  18. NEORAL [Suspect]
     Active Substance: CYCLOSPORINE
     Dosage: 120 MG, UNK
     Route: 048
     Dates: start: 20120718, end: 20120725
  19. NEORAL [Suspect]
     Active Substance: CYCLOSPORINE
     Dosage: 10 MG, UNK
     Route: 048
     Dates: start: 20160624
  20. LIPITOR [Concomitant]
     Active Substance: ATORVASTATIN CALCIUM
     Indication: HYPERLIPIDAEMIA
     Dosage: 20 MG, UNK
     Route: 048
     Dates: start: 20130207
  21. ALFAROL [Concomitant]
     Active Substance: ALFACALCIDOL
     Indication: PROPHYLAXIS
     Dosage: 0.5 UG, UNK
     Route: 048
  22. CERTICAN [Suspect]
     Active Substance: EVEROLIMUS
     Dosage: 2.75 MG, UNK
     Route: 048
     Dates: start: 20121019, end: 20130307
  23. NEORAL [Suspect]
     Active Substance: CYCLOSPORINE
     Dosage: 95 MG, UNK
     Route: 048
     Dates: start: 20120920, end: 20120926
  24. NEORAL [Suspect]
     Active Substance: CYCLOSPORINE
     Dosage: 40 MG, UNK
     Route: 048
     Dates: start: 20140711, end: 20140904
  25. URINORM [Concomitant]
     Active Substance: BENZBROMARONE
     Indication: HYPERURICAEMIA
     Dosage: 50 MG, UNK
     Route: 048
     Dates: start: 20051124
  26. CERTICAN [Suspect]
     Active Substance: EVEROLIMUS
     Dosage: 1.25 MG, UNK
     Route: 048
     Dates: start: 20120718, end: 20120809
  27. CERTICAN [Suspect]
     Active Substance: EVEROLIMUS
     Dosage: 2.5 MG, UNK
     Route: 048
     Dates: start: 20120927
  28. CERTICAN [Suspect]
     Active Substance: EVEROLIMUS
     Dosage: 3 MG, UNK
     Route: 048
     Dates: start: 20130308, end: 20130502
  29. CERTICAN [Suspect]
     Active Substance: EVEROLIMUS
     Dosage: 3.5 MG, UNK
     Route: 048
     Dates: start: 20140905, end: 20150108
  30. NEORAL [Suspect]
     Active Substance: CYCLOSPORINE
     Dosage: 80 MG, UNK
     Route: 048
     Dates: start: 20121207, end: 20130613
  31. FERROMIA [Concomitant]
     Active Substance: FERROUS CITRATE
     Indication: ANAEMIA
     Dosage: 200 MG, UNK
     Route: 048
     Dates: start: 20140221
  32. CERTICAN [Suspect]
     Active Substance: EVEROLIMUS
     Dosage: 2 MG, UNK
     Route: 048
     Dates: start: 20120907, end: 20120919
  33. CERTICAN [Suspect]
     Active Substance: EVEROLIMUS
     Dosage: 2.25 MG, UNK
     Route: 048
     Dates: start: 20120920, end: 20120926
  34. CERTICAN [Suspect]
     Active Substance: EVEROLIMUS
     Dosage: 3 MG, UNK
     Route: 048
     Dates: start: 20140321, end: 20140807
  35. NEORAL [Suspect]
     Active Substance: CYCLOSPORINE
     Dosage: 100 MG, UNK
     Route: 048
     Dates: start: 20120907, end: 20120919
  36. NEORAL [Suspect]
     Active Substance: CYCLOSPORINE
     Dosage: 50 MG, UNK
     Route: 048
     Dates: start: 20140613, end: 20140710
  37. NEORAL [Suspect]
     Active Substance: CYCLOSPORINE
     Dosage: 30 MG, UNK
     Route: 048
     Dates: start: 20140905, end: 20141002
  38. NEORAL [Suspect]
     Active Substance: CYCLOSPORINE
     Dosage: 20 MG, UNK
     Route: 048
     Dates: start: 20141003, end: 20160623
  39. BUFFERIN                           /00009201/ [Concomitant]
     Active Substance: ASPIRIN\DIHYDROXYALUMINUM AMINOACETATE ANHYDROUS\MAGNESIUM CARBONATE
     Indication: PROPHYLAXIS
     Dosage: 81 MG, UNK
     Route: 048
     Dates: start: 20051124
  40. CERTICAN [Suspect]
     Active Substance: EVEROLIMUS
     Dosage: 2.75 MG, UNK
     Route: 048
     Dates: start: 20130503, end: 20130530
  41. NEORAL [Suspect]
     Active Substance: CYCLOSPORINE
     Dosage: 110 MG, UNK
     Route: 048
     Dates: start: 20120810, end: 20120822

REACTIONS (2)
  - Alopecia [Recovering/Resolving]
  - Genital haemorrhage [Recovering/Resolving]

NARRATIVE: CASE EVENT DATE: 20130110
